FAERS Safety Report 5510791-4 (Version None)
Quarter: 2007Q4

REPORT INFORMATION
  Report Type: 
  Country: None (occurrence: None)
  Receive Date: 20071107
  Receipt Date: 20071027
  Transmission Date: 20080405
  Serious: Yes (Other)
  Sender: FDA-Public Use
  Company Number: 2007002086

PATIENT
  Sex: Male
  Weight: 3 kg

DRUGS (3)
  1. ERLOTINIB [Suspect]
     Indication: NON-SMALL CELL LUNG CANCER METASTATIC
     Dosage: TRANSPLACENTAL
     Route: 064
  2. BEVACIZUMAB [Suspect]
     Dosage: TRANSPLACENTAL
     Route: 064
  3. ERLOTINIB [Suspect]

REACTIONS (2)
  - HAND DEFORMITY [None]
  - TRANSMISSION OF DRUG VIA SEMEN [None]
